FAERS Safety Report 9831193 (Version 17)
Quarter: 2015Q4

REPORT INFORMATION
  Report Type: Report from Study
  Country: CA (occurrence: CA)
  Receive Date: 20140121
  Receipt Date: 20151209
  Transmission Date: 20160305
  Serious: Yes (Hospitalization, Other)
  Sender: FDA-Public Use
  Company Number: CA-ROCHE-1230750

PATIENT
  Age: 37 Year
  Sex: Female
  Weight: 100 kg

DRUGS (11)
  1. RITUXAN [Suspect]
     Active Substance: RITUXIMAB
     Route: 042
     Dates: start: 20150112
  2. METHOTREXATE [Suspect]
     Active Substance: METHOTREXATE
     Route: 048
     Dates: end: 201501
  3. FOLIC ACID. [Concomitant]
     Active Substance: FOLIC ACID
  4. HYDROMORPHONE [Concomitant]
     Active Substance: HYDROMORPHONE
  5. ACETAMINOPHEN. [Concomitant]
     Active Substance: ACETAMINOPHEN
     Indication: PREMEDICATION
     Route: 048
     Dates: start: 20120528
  6. RITUXAN [Suspect]
     Active Substance: RITUXIMAB
     Indication: RHEUMATOID ARTHRITIS
     Dosage: LAST DOSE RECEIVED ON 03/FEB/2015
     Route: 042
     Dates: start: 20130528
  7. METHOTREXATE [Suspect]
     Active Substance: METHOTREXATE
     Indication: PRODUCT USED FOR UNKNOWN INDICATION
     Route: 058
     Dates: start: 201501
  8. DIPHENHYDRAMINE HCL [Concomitant]
     Active Substance: DIPHENHYDRAMINE HYDROCHLORIDE
     Indication: PREMEDICATION
     Route: 048
     Dates: start: 20120528
  9. PREDNISONE. [Concomitant]
     Active Substance: PREDNISONE
  10. CLONAZEPAM. [Concomitant]
     Active Substance: CLONAZEPAM
     Route: 065
     Dates: start: 2013
  11. METHYLPREDNISOLONE. [Concomitant]
     Active Substance: METHYLPREDNISOLONE
     Indication: PREMEDICATION
     Route: 042
     Dates: start: 20120528

REACTIONS (33)
  - Systemic lupus erythematosus [Unknown]
  - Stomatitis [Recovering/Resolving]
  - Contusion [Unknown]
  - Pain [Not Recovered/Not Resolved]
  - Joint swelling [Not Recovered/Not Resolved]
  - Skin ulcer [Recovering/Resolving]
  - Skin ulcer haemorrhage [Not Recovered/Not Resolved]
  - Oral herpes [Unknown]
  - Swelling [Unknown]
  - Gait disturbance [Unknown]
  - Skin ulcer [Unknown]
  - Depression [Unknown]
  - Pyrexia [Unknown]
  - Nasopharyngitis [Unknown]
  - Purulent discharge [Not Recovered/Not Resolved]
  - Joint effusion [Unknown]
  - Skin ulcer [Unknown]
  - Eating disorder [Unknown]
  - Pain [Unknown]
  - Suicidal ideation [Not Recovered/Not Resolved]
  - Wound [Not Recovered/Not Resolved]
  - Rheumatoid arthritis [Not Recovered/Not Resolved]
  - Faeces discoloured [Unknown]
  - Peripheral swelling [Not Recovered/Not Resolved]
  - Gastrointestinal viral infection [Unknown]
  - Erythema [Unknown]
  - Pain [Unknown]
  - Pneumonia [Unknown]
  - Skin discolouration [Unknown]
  - Drug ineffective [Unknown]
  - Arthralgia [Unknown]
  - Infusion related reaction [Unknown]
  - Gastric disorder [Unknown]

NARRATIVE: CASE EVENT DATE: 20130528
